FAERS Safety Report 9400284 (Version 1)
Quarter: 2013Q3

REPORT INFORMATION
  Report Type: Spontaneous
  Country: US (occurrence: None)
  Receive Date: 20130712
  Receipt Date: 20130712
  Transmission Date: 20140515
  Serious: No
  Sender: FDA-Public Use
  Company Number: None

PATIENT
  Age: 44 Year
  Sex: Female

DRUGS (2)
  1. QSYMIA [Suspect]
     Indication: WEIGHT CONTROL
     Dosage: 14?
     Route: 048
     Dates: start: 20130523, end: 20130605
  2. QSYMIA [Suspect]
     Indication: WEIGHT DECREASED
     Dosage: 30
     Route: 048
     Dates: start: 20130523, end: 20130623

REACTIONS (2)
  - Medication error [None]
  - Inappropriate schedule of drug administration [None]
